APPROVED DRUG PRODUCT: MARCAINE HYDROCHLORIDE W/ EPINEPHRINE PRESERVATIVE FREE
Active Ingredient: BUPIVACAINE HYDROCHLORIDE; EPINEPHRINE BITARTRATE
Strength: 0.25%;0.0091MG/ML
Dosage Form/Route: INJECTABLE;INJECTION
Application: N016964 | Product #013 | TE Code: AP
Applicant: HOSPIRA INC
Approved: Approved Prior to Jan 1, 1982 | RLD: Yes | RS: Yes | Type: RX